FAERS Safety Report 10667454 (Version 1)
Quarter: 2014Q4

REPORT INFORMATION
  Report Type: Spontaneous
  Country: US (occurrence: US)
  Receive Date: 20141222
  Receipt Date: 20141222
  Transmission Date: 20150529
  Serious: Yes (Hospitalization, Other)
  Sender: FDA-Public Use
  Company Number: US-TEVA-529518USA

PATIENT
  Sex: Male

DRUGS (3)
  1. TREANDA [Suspect]
     Active Substance: BENDAMUSTINE HYDROCHLORIDE
     Indication: CHRONIC LYMPHOCYTIC LEUKAEMIA
     Dosage: ONLY RECEIVED ONE DOSE
     Route: 065
  2. TREANDA [Suspect]
     Active Substance: BENDAMUSTINE HYDROCHLORIDE
     Indication: BLOOD COUNT ABNORMAL
  3. TREANDA [Suspect]
     Active Substance: BENDAMUSTINE HYDROCHLORIDE
     Indication: LYMPHADENOPATHY

REACTIONS (6)
  - Urosepsis [Unknown]
  - Pyrexia [Unknown]
  - Lymphadenopathy [Unknown]
  - Urinary tract infection [Unknown]
  - Blood count abnormal [Unknown]
  - Blood pressure decreased [Unknown]
